FAERS Safety Report 9726134 (Version 1)
Quarter: 2013Q4

REPORT INFORMATION
  Report Type: Report from Study
  Country: CA (occurrence: CA)
  Receive Date: 20131203
  Receipt Date: 20131203
  Transmission Date: 20140711
  Serious: Yes (Other)
  Sender: FDA-Public Use
  Company Number: CA-JNJFOC-20131118043

PATIENT
  Sex: Female
  Weight: 74.4 kg

DRUGS (4)
  1. REMICADE [Suspect]
     Indication: CROHN^S DISEASE
     Route: 042
     Dates: start: 20121204
  2. PENTALAC [Concomitant]
     Route: 065
  3. CELEXA [Concomitant]
     Route: 065
  4. MULTIVITAMINS [Concomitant]
     Route: 065

REACTIONS (1)
  - Breast mass [Unknown]
